FAERS Safety Report 12248597 (Version 1)
Quarter: 2016Q2

REPORT INFORMATION
  Report Type: Spontaneous
  Country: US (occurrence: US)
  Receive Date: 20160408
  Receipt Date: 20160408
  Transmission Date: 20160815
  Serious: No
  Sender: FDA-Public Use
  Company Number: US-PFIZER INC-2016150345

PATIENT
  Sex: Female

DRUGS (3)
  1. TIKOSYN [Suspect]
     Active Substance: DOFETILIDE
     Dosage: UNK
     Dates: start: 20160118
  2. CRESTOR [Suspect]
     Active Substance: ROSUVASTATIN CALCIUM
  3. COLCRYS [Suspect]
     Active Substance: COLCHICINE

REACTIONS (1)
  - Chest pain [Unknown]
